FAERS Safety Report 20190583 (Version 1)
Quarter: 2021Q4

REPORT INFORMATION
  Report Type: Spontaneous
  Country: US (occurrence: None)
  Receive Date: 20211216
  Receipt Date: 20211216
  Transmission Date: 20220303
  Serious: No
  Sender: FDA-Public Use
  Company Number: US-MDD US Operations-2021SUP00028

PATIENT
  Sex: Female

DRUGS (3)
  1. TROKENDI XR [Suspect]
     Active Substance: TOPIRAMATE
     Indication: Migraine
     Dosage: UNK, WITH FOOD
  2. TROKENDI XR [Suspect]
     Active Substance: TOPIRAMATE
  3. UNSPECIFIED COVID VACCINE [Concomitant]

REACTIONS (6)
  - Malaise [Unknown]
  - Anosmia [Recovered/Resolved]
  - Decreased appetite [Unknown]
  - Diarrhoea [Not Recovered/Not Resolved]
  - Sinusitis [Recovered/Resolved]
  - Ageusia [Recovered/Resolved]
